FAERS Safety Report 11692872 (Version 1)
Quarter: 2015Q4

REPORT INFORMATION
  Report Type: Spontaneous
  Country: BR (occurrence: BR)
  Receive Date: 20151103
  Receipt Date: 20151103
  Transmission Date: 20160304
  Serious: Yes (Hospitalization)
  Sender: FDA-Public Use
  Company Number: BR-ELI_LILLY_AND_COMPANY-BR201510008304

PATIENT
  Age: 0 Day
  Sex: Female
  Weight: 2.43 kg

DRUGS (2)
  1. HUMALOG [Suspect]
     Active Substance: INSULIN LISPRO
     Indication: GESTATIONAL DIABETES
     Dosage: 6 IU, TID
     Route: 064
     Dates: start: 201501
  2. HUMULIN N [Suspect]
     Active Substance: INSULIN HUMAN
     Indication: GESTATIONAL DIABETES
     Dosage: 6 IU, EACH MORNING
     Route: 064
     Dates: start: 20150218

REACTIONS (4)
  - Foetal exposure during pregnancy [Unknown]
  - Dyspnoea [Unknown]
  - Hypoglycaemia [Unknown]
  - Premature baby [Unknown]

NARRATIVE: CASE EVENT DATE: 20150307
